FAERS Safety Report 9693696 (Version 2)
Quarter: 2013Q4

REPORT INFORMATION
  Report Type: Report from Study
  Country: VE (occurrence: VE)
  Receive Date: 20131118
  Receipt Date: 20131118
  Transmission Date: 20140711
  Serious: Yes (Hospitalization, Other)
  Sender: FDA-Public Use
  Company Number: VE-ABBVIE-13P-178-1035784-00

PATIENT
  Sex: Female
  Weight: 89 kg

DRUGS (2)
  1. HUMIRA [Suspect]
     Indication: RHEUMATOID ARTHRITIS
     Route: 058
     Dates: start: 2009, end: 2010
  2. CALCORT [Concomitant]
     Indication: RHEUMATOID ARTHRITIS

REACTIONS (1)
  - Haemoglobin decreased [Recovered/Resolved]
